FAERS Safety Report 13619604 (Version 1)
Quarter: 2017Q2

REPORT INFORMATION
  Report Type: Spontaneous
  Country: US (occurrence: US)
  Receive Date: 20170606
  Receipt Date: 20170606
  Transmission Date: 20170830
  Serious: No
  Sender: FDA-Public Use
  Company Number: None

PATIENT
  Age: 71 Year
  Sex: Female
  Weight: 62.65 kg

DRUGS (1)
  1. FORTEO [Suspect]
     Active Substance: TERIPARATIDE
     Indication: OSTEOPOROSIS
     Route: 058
     Dates: start: 20170523

REACTIONS (9)
  - Disorientation [None]
  - Diarrhoea [None]
  - Asthma [None]
  - Dizziness [None]
  - Headache [None]
  - Nausea [None]
  - Abdominal pain [None]
  - Pharyngeal oedema [None]
  - Bronchitis [None]
